FAERS Safety Report 8342193-X (Version None)
Quarter: 2012Q2

REPORT INFORMATION
  Report Type: 
  Country: None (occurrence: None)
  Receive Date: 20120507
  Receipt Date: 20120502
  Transmission Date: 20120825
  Serious: Yes (Other)
  Sender: FDA-Public Use
  Company Number: PA-ABBOTT-12P-125-0929044-00

PATIENT
  Sex: Female

DRUGS (4)
  1. HUMIRA [Suspect]
     Indication: RHEUMATOID ARTHRITIS
     Route: 058
     Dates: start: 20090923, end: 20111014
  2. NATELE [Concomitant]
     Indication: PRENATAL CARE
     Route: 048
     Dates: start: 20120201
  3. FOLIC ACID [Concomitant]
     Indication: PRENATAL CARE
     Route: 048
     Dates: start: 20111201
  4. PREDNISONE [Concomitant]
     Indication: RHEUMATOID ARTHRITIS
     Route: 048
     Dates: start: 20120201

REACTIONS (1)
  - ABORTION SPONTANEOUS [None]
